FAERS Safety Report 24450466 (Version 4)
Quarter: 2025Q2

REPORT INFORMATION
  Report Type: Spontaneous
  Country: DE (occurrence: DE)
  Receive Date: 20241017
  Receipt Date: 20250520
  Transmission Date: 20250717
  Serious: Yes (Other)
  Sender: NOVARTIS
  Company Number: DE-002147023-NVSC2024DE201056

PATIENT
  Sex: Female

DRUGS (1)
  1. KESIMPTA [Suspect]
     Active Substance: OFATUMUMAB
     Indication: Multiple sclerosis
     Dosage: 20 MG, QMO
     Route: 065
     Dates: start: 2024

REACTIONS (5)
  - Chest discomfort [Recovering/Resolving]
  - Paraesthesia [Unknown]
  - Migraine [Unknown]
  - Dyspnoea [Recovering/Resolving]
  - Skin disorder [Not Recovered/Not Resolved]
